FAERS Safety Report 6305946-5 (Version None)
Quarter: 2009Q3

REPORT INFORMATION
  Report Type: 
  Country: None (occurrence: None)
  Receive Date: 20090812
  Receipt Date: 20090804
  Transmission Date: 20100115
  Serious: Yes (Hospitalization)
  Sender: FDA-Public Use
  Company Number: US-WYE-H10461309

PATIENT
  Age: 37 Year
  Sex: Male

DRUGS (5)
  1. ZOSYN [Suspect]
     Indication: ABSCESS NECK
     Dosage: UNKNOWN
     Route: 042
  2. ZOSYN [Suspect]
     Indication: LYMPHADENITIS
  3. IBUPROFEN [Concomitant]
  4. VANCOMYCIN [Suspect]
     Indication: ABSCESS NECK
     Dosage: UNKNOWN
     Route: 042
  5. VANCOMYCIN [Suspect]
     Indication: LYMPHADENITIS

REACTIONS (2)
  - BLOOD CREATININE INCREASED [None]
  - NEPHROPATHY TOXIC [None]
